FAERS Safety Report 7653172-X (Version None)
Quarter: 2011Q3

REPORT INFORMATION
  Report Type: 
  Country: None (occurrence: None)
  Receive Date: 20110802
  Receipt Date: 20110802
  Transmission Date: 20111222
  Serious: Yes (Other)
  Sender: FDA-Public Use
  Company Number: None

PATIENT
  Age: 65 Year
  Sex: Female
  Weight: 72.1219 kg

DRUGS (1)
  1. ONGLYZA [Suspect]
     Dosage: 5MG 1X DAILY
     Dates: start: 20110427

REACTIONS (15)
  - THINKING ABNORMAL [None]
  - GAIT DISTURBANCE [None]
  - PARAESTHESIA [None]
  - DIZZINESS [None]
  - BURNING SENSATION [None]
  - PRURITUS [None]
  - ERYTHEMA [None]
  - NAUSEA [None]
  - CARDIAC FLUTTER [None]
  - VISION BLURRED [None]
  - MUSCLE STRAIN [None]
  - NEOPLASM MALIGNANT [None]
  - BALANCE DISORDER [None]
  - FEELING ABNORMAL [None]
  - DYSPHEMIA [None]
